FAERS Safety Report 6608631-5 (Version None)
Quarter: 2010Q1

REPORT INFORMATION
  Report Type: 
  Country: None (occurrence: None)
  Receive Date: 20100226
  Receipt Date: 20100226
  Transmission Date: 20100710
  Serious: No
  Sender: FDA-Public Use
  Company Number: None

PATIENT
  Age: 16 Year
  Sex: Male
  Weight: 69.8539 kg

DRUGS (6)
  1. FLUOXETINE [Suspect]
     Dosage: 10MG PO
     Route: 048
  2. RISPERIDONE [Suspect]
     Dosage: 36NG PO
     Route: 048
  3. ADDERALL 30 [Concomitant]
  4. GUANFACINE HYDROCHLORIDE [Concomitant]
  5. DEPAKOTE [Concomitant]
  6. ALBUTEROL SULATE [Concomitant]

REACTIONS (2)
  - INCORRECT DOSE ADMINISTERED [None]
  - MEDICATION ERROR [None]
